FAERS Safety Report 21508210 (Version 1)
Quarter: 2022Q4

REPORT INFORMATION
  Report Type: Spontaneous
  Country: US (occurrence: US)
  Receive Date: 20221026
  Receipt Date: 20221026
  Transmission Date: 20230113
  Serious: Yes (Other)
  Sender: FDA-Public Use
  Company Number: US-PFIZER INC-202201250301

PATIENT
  Age: 29 Year
  Sex: Male

DRUGS (1)
  1. BOSULIF [Suspect]
     Active Substance: BOSUTINIB MONOHYDRATE
     Dosage: 500 MG, 1X/DAY
     Route: 048
     Dates: start: 20190220, end: 20221021

REACTIONS (3)
  - Philadelphia chromosome positive [Unknown]
  - Abdominal pain upper [Recovered/Resolved]
  - Product administration error [Unknown]
